FAERS Safety Report 7549787-X (Version None)
Quarter: 2011Q2

REPORT INFORMATION
  Report Type: 
  Country: None (occurrence: None)
  Receive Date: 20110615
  Receipt Date: 20060720
  Transmission Date: 20111010
  Serious: Yes (Death, Life-Threatening, Hospitalization)
  Sender: FDA-Public Use
  Company Number: PHFR2006GB01857

PATIENT
  Sex: Female

DRUGS (3)
  1. MIRTAZAPINE [Concomitant]
     Indication: DEPRESSION
     Dosage: 45 MG, QD
     Route: 048
  2. CLOZAPINE [Suspect]
     Indication: SCHIZOPHRENIA
     Dosage: 75 MG, QD
     Route: 048
     Dates: start: 20060512
  3. LORAZEPAM [Concomitant]
     Indication: CATATONIA
     Dosage: 3 MG, QD
     Route: 048

REACTIONS (10)
  - SEPSIS [None]
  - RESPIRATORY FAILURE [None]
  - PULMONARY OEDEMA [None]
  - URINARY TRACT INFECTION [None]
  - PNEUMONIA [None]
  - TACHYPNOEA [None]
  - PYREXIA [None]
  - ATRIAL FIBRILLATION [None]
  - ASPIRATION [None]
  - TACHYCARDIA [None]
